FAERS Safety Report 7887898-X (Version None)
Quarter: 2011Q4

REPORT INFORMATION
  Report Type: 
  Country: None (occurrence: None)
  Receive Date: 20111103
  Receipt Date: 20111103
  Transmission Date: 20120403
  Serious: No
  Sender: FDA-Public Use
  Company Number: None

PATIENT
  Sex: Female
  Weight: 62.595 kg

DRUGS (1)
  1. GADOBENATE DIMEGLUMINE [Suspect]
     Indication: NUCLEAR MAGNETIC RESONANCE IMAGING
     Dosage: 13 ML
     Route: 042
     Dates: start: 20111013, end: 20111013

REACTIONS (3)
  - HAEMODYNAMIC INSTABILITY [None]
  - CARDIO-RESPIRATORY ARREST [None]
  - DYSPNOEA [None]
